FAERS Safety Report 10012525 (Version 1)
Quarter: 2014Q1

REPORT INFORMATION
  Report Type: Report from Study
  Country: IN (occurrence: IN)
  Receive Date: 20140314
  Receipt Date: 20140314
  Transmission Date: 20141002
  Serious: Yes (Other)
  Sender: FDA-Public Use
  Company Number: IN-BRISTOL-MYERS SQUIBB COMPANY-20448981

PATIENT
  Age: 27 Year
  Sex: Female

DRUGS (2)
  1. STOCRIN CAPS [Suspect]
     Indication: HIV INFECTION
     Route: 048
     Dates: start: 20080331
  2. COMBIVIR [Suspect]
     Indication: HIV INFECTION
     Dosage: 1DF= 2 TABS/CAPS
     Route: 048
     Dates: start: 20080331

REACTIONS (2)
  - Abortion induced [Unknown]
  - Pregnancy [Recovered/Resolved]
